FAERS Safety Report 9216754 (Version 2)
Quarter: 2013Q2

REPORT INFORMATION
  Report Type: Spontaneous
  Country: US (occurrence: US)
  Receive Date: 20130408
  Receipt Date: 20130528
  Transmission Date: 20140414
  Serious: No
  Sender: FDA-Public Use
  Company Number: US-PFIZER INC-2013108079

PATIENT
  Age: 72 Year
  Sex: Female
  Weight: 65.31 kg

DRUGS (4)
  1. ADVIL COLD AND SINUS [Suspect]
     Indication: RHINORRHOEA
     Dosage: TWO TABLETS OF 200 MG, TWO TIMES A DAY
     Route: 048
     Dates: start: 20130326
  2. ATENOLOL [Concomitant]
     Indication: HYPERTENSION
     Dosage: 50 MG, DAILY
  3. AMLODIPINE [Concomitant]
     Indication: HYPERTENSION
     Dosage: 2.5 MG, DAILY
  4. CRESTOR [Concomitant]
     Indication: BLOOD CHOLESTEROL ABNORMAL
     Dosage: 10 MG, DAILY

REACTIONS (1)
  - Drug ineffective [Unknown]
